FAERS Safety Report 16119419 (Version 1)
Quarter: 2019Q1

REPORT INFORMATION
  Report Type: Spontaneous
  Country: JP (occurrence: JP)
  Receive Date: 20190326
  Receipt Date: 20190326
  Transmission Date: 20190418
  Serious: Yes (Other)
  Sender: FDA-Public Use
  Company Number: JP-PFIZER INC-2019120953

PATIENT
  Age: 46 Year
  Sex: Male
  Weight: 69.7 kg

DRUGS (1)
  1. CHAMPIX [Suspect]
     Active Substance: VARENICLINE TARTRATE
     Indication: NICOTINE DEPENDENCE
     Dosage: 0.5 MG, 1X/DAY
     Route: 048
     Dates: start: 20190311, end: 20190313

REACTIONS (6)
  - Diarrhoea haemorrhagic [Recovering/Resolving]
  - Syncope [Recovered/Resolved]
  - Dizziness [Unknown]
  - Hyperhidrosis [Unknown]
  - Abdominal distension [Unknown]
  - Fall [Unknown]

NARRATIVE: CASE EVENT DATE: 201903
